FAERS Safety Report 6237324-1 (Version None)
Quarter: 2009Q2

REPORT INFORMATION
  Report Type: 
  Country: None (occurrence: None)
  Receive Date: 20090619
  Receipt Date: 20090611
  Transmission Date: 20091009
  Serious: Yes (Hospitalization, Other)
  Sender: FDA-Public Use
  Company Number: DE-ABBOTT-05P-062-0290406-00

PATIENT
  Sex: Female

DRUGS (13)
  1. RITONAVIR [Suspect]
     Indication: HIV INFECTION
     Route: 048
     Dates: start: 20031212, end: 20040728
  2. TMC114 [Concomitant]
     Indication: HIV INFECTION
     Route: 048
     Dates: start: 20031212, end: 20040728
  3. TENOFOVIR [Concomitant]
     Indication: HIV INFECTION
  4. DIDANOSINE [Concomitant]
     Indication: HIV INFECTION
     Route: 048
  5. ENFUVIRTIDE [Concomitant]
     Indication: HIV INFECTION
     Route: 058
     Dates: start: 20031212
  6. LOPINAVIR [Concomitant]
     Indication: HIV INFECTION
     Route: 048
     Dates: start: 20040809
  7. ATAZANAVIR SULFATE [Concomitant]
     Indication: HIV INFECTION
     Route: 048
     Dates: start: 20040809
  8. METAMIZOLE [Concomitant]
     Indication: NASOPHARYNGITIS
     Route: 048
     Dates: start: 20040712
  9. DIHYDROCODEINE BITARTRATE INJ [Concomitant]
     Indication: DIARRHOEA
     Route: 048
     Dates: start: 20040712
  10. TANNOSYNT [Concomitant]
     Indication: HERPES SIMPLEX
     Route: 061
  11. CRYSTAL VIOLET [Concomitant]
     Indication: GASTROINTESTINAL DISORDER
     Route: 061
     Dates: start: 20031229
  12. DIMETICONE, ACTIVATED [Concomitant]
     Indication: FLATULENCE
     Route: 048
     Dates: start: 20040602
  13. RITONAVIR [Concomitant]
     Indication: HIV INFECTION
     Route: 048
     Dates: start: 20040809

REACTIONS (3)
  - ABORTION [None]
  - DRUG EXPOSURE DURING PREGNANCY [None]
  - PLACENTA PRAEVIA [None]
